FAERS Safety Report 11297438 (Version 1)
Quarter: 2015Q3

REPORT INFORMATION
  Report Type: Spontaneous
  Country: US (occurrence: US)
  Receive Date: 20150722
  Receipt Date: 20150722
  Transmission Date: 20151125
  Serious: No
  Sender: FDA-Public Use
  Company Number: US-ELI_LILLY_AND_COMPANY-US201105001654

PATIENT
  Sex: Female

DRUGS (3)
  1. ANTIDEPRESSANTS [Concomitant]
     Active Substance: UNSPECIFIED INGREDIENT
  2. MOTRIN [Concomitant]
     Active Substance: IBUPROFEN
  3. EVISTA [Suspect]
     Active Substance: RALOXIFENE HYDROCHLORIDE
     Indication: OSTEOPENIA
     Dosage: 60 MG, QD
     Dates: start: 20110401, end: 20110428

REACTIONS (7)
  - Fibromyalgia [Recovering/Resolving]
  - Pain [Recovering/Resolving]
  - Inflammation [Unknown]
  - Headache [Recovering/Resolving]
  - Depression [Unknown]
  - Rash generalised [Recovering/Resolving]
  - Myalgia [Recovering/Resolving]
